FAERS Safety Report 6382467-5 (Version None)
Quarter: 2009Q3

REPORT INFORMATION
  Report Type: 
  Country: None (occurrence: None)
  Receive Date: 20090924
  Receipt Date: 20081208
  Transmission Date: 20100115
  Serious: Yes (Hospitalization, Disabling)
  Sender: FDA-Public Use
  Company Number: WAES 0812USA02002

PATIENT
  Sex: Male

DRUGS (1)
  1. VYTORIN [Suspect]
     Indication: LOW DENSITY LIPOPROTEIN DECREASED
     Dosage: 10/80 MG/DAILY/PO
     Route: 048

REACTIONS (1)
  - RHABDOMYOLYSIS [None]
